FAERS Safety Report 8159123-6 (Version None)
Quarter: 2012Q1

REPORT INFORMATION
  Report Type: 
  Country: None (occurrence: None)
  Receive Date: 20120217
  Receipt Date: 20120203
  Transmission Date: 20120608
  Serious: Yes (Other)
  Sender: FDA-Public Use
  Company Number: 2012P1004307

PATIENT
  Age: 59 Year
  Sex: Male

DRUGS (1)
  1. MORPHINE SULFATE [Suspect]

REACTIONS (3)
  - INTRACRANIAL HYPOTENSION [None]
  - POST PROCEDURAL COMPLICATION [None]
  - POST LUMBAR PUNCTURE SYNDROME [None]
